FAERS Safety Report 7651400-8 (Version None)
Quarter: 2011Q3

REPORT INFORMATION
  Report Type: 
  Country: None (occurrence: None)
  Receive Date: 20110802
  Receipt Date: 20110721
  Transmission Date: 20111222
  Serious: Yes (Hospitalization)
  Sender: FDA-Public Use
  Company Number: PHHY2011US54133

PATIENT
  Sex: Male

DRUGS (2)
  1. GLEEVEC [Suspect]
     Indication: GASTROINTESTINAL NEOPLASM
     Dosage: 400 MG, DAILY
     Route: 048
     Dates: start: 20100224
  2. HYDROCODONE [Concomitant]
     Indication: PAIN
     Route: 048

REACTIONS (3)
  - NEOPLASM PROGRESSION [None]
  - INTESTINAL OBSTRUCTION [None]
  - ABDOMINAL PAIN [None]
